FAERS Safety Report 8836639 (Version 2)
Quarter: 2012Q4

REPORT INFORMATION
  Report Type: Spontaneous
  Country: US (occurrence: None)
  Receive Date: 20121010
  Receipt Date: 20121015
  Transmission Date: 20130627
  Serious: Yes (Death, Life-Threatening, Other)
  Sender: FDA-Public Use
  Company Number: MC201200626

PATIENT
  Age: 41 Year
  Sex: Female
  Weight: 70 kg

DRUGS (2)
  1. ANGIOMAX [Suspect]
     Route: 040
     Dates: start: 20120921, end: 20120921
  2. ANGIOMAX [Suspect]
     Route: 042
     Dates: start: 20120921, end: 20120921

REACTIONS (16)
  - Cardio-respiratory arrest [None]
  - Coronary artery occlusion [None]
  - Ventricular tachycardia [None]
  - Aggression [None]
  - Dyspnoea [None]
  - Bradycardia [None]
  - Agitation [None]
  - Pulmonary alveolar haemorrhage [None]
  - Contrast media allergy [None]
  - Drug hypersensitivity [None]
  - Hypotension [None]
  - Erythema [None]
  - Endotracheal intubation complication [None]
  - Lung disorder [None]
  - Post procedural complication [None]
  - Coronary artery thrombosis [None]
